FAERS Safety Report 4693792-8 (Version None)
Quarter: 2005Q2

REPORT INFORMATION
  Report Type: 
  Country: None (occurrence: None)
  Receive Date: 20050616
  Receipt Date: 20050606
  Transmission Date: 20051028
  Serious: Yes (Hospitalization)
  Sender: FDA-Public Use
  Company Number: 128-20785-05060154

PATIENT
  Age: 56 Year
  Sex: Male

DRUGS (1)
  1. THALIDOMIDE [Suspect]
     Indication: MULTIPLE MYELOMA
     Dosage: 50 MG, DAILY, ORAL
     Route: 048
     Dates: start: 20050601, end: 20050604

REACTIONS (4)
  - APHASIA [None]
  - DYSPHAGIA [None]
  - INCONTINENCE [None]
  - PYREXIA [None]
